FAERS Safety Report 24374140 (Version 3)
Quarter: 2024Q4

REPORT INFORMATION
  Report Type: Report from Study
  Country: PE (occurrence: PE)
  Receive Date: 20240927
  Receipt Date: 20241013
  Transmission Date: 20250114
  Serious: Yes (Other)
  Sender: JOHNSON AND JOHNSON
  Company Number: PE-JNJFOC-20240410257

PATIENT
  Age: 42 Year
  Sex: Female

DRUGS (1)
  1. SPRAVATO [Suspect]
     Active Substance: ESKETAMINE
     Indication: Depression
     Dosage: 56 MG (2 DEVICES) LAST ADMINISTERED DOSES: 08-APR-2024, 11-APR-2024, 16-APR-2024, 23-APR-2024, 03-MA
     Dates: start: 20240402, end: 20241007

REACTIONS (14)
  - Depression [Recovering/Resolving]
  - Thrombophlebitis [Unknown]
  - Anaesthesia oral [Not Recovered/Not Resolved]
  - Flushing [Not Recovered/Not Resolved]
  - Viral infection [Unknown]
  - Feeling of relaxation [Not Recovered/Not Resolved]
  - Dysgeusia [Not Recovered/Not Resolved]
  - Paraesthesia [Not Recovered/Not Resolved]
  - Dissociation [Not Recovered/Not Resolved]
  - Blood pressure increased [Unknown]
  - Somnolence [Not Recovered/Not Resolved]
  - Vision blurred [Not Recovered/Not Resolved]
  - Dizziness [Not Recovered/Not Resolved]
  - Sedation [Not Recovered/Not Resolved]

NARRATIVE: CASE EVENT DATE: 20240402
